FAERS Safety Report 5989767-9 (Version None)
Quarter: 2008Q4

REPORT INFORMATION
  Report Type: 
  Country: None (occurrence: None)
  Receive Date: 20081209
  Receipt Date: 20081127
  Transmission Date: 20090506
  Serious: Yes (Other)
  Sender: FDA-Public Use
  Company Number: TRP_06000_2008

PATIENT
  Age: 35 Year
  Sex: Male

DRUGS (6)
  1. INFERAX [Suspect]
     Indication: HEPATITIS C
     Dosage: 18 ?G QD SUBCUTANEOUS, 9 ?G QD SUBCUTANEOUS
     Route: 058
  2. INFERAX [Suspect]
     Indication: HEPATITIS C
     Dosage: 18 ?G QD SUBCUTANEOUS, 9 ?G QD SUBCUTANEOUS
     Route: 058
  3. RIBAVIRIN [Suspect]
     Indication: HEPATITIS C
     Dosage: DF ORAL
     Route: 048
  4. LEVOFLOXACIN [Concomitant]
  5. CEFOTAXIM [Concomitant]
  6. PENICILLIN G /000000901/ [Concomitant]

REACTIONS (2)
  - DEAFNESS NEUROSENSORY [None]
  - MENINGITIS PNEUMOCOCCAL [None]
